FAERS Safety Report 13985377 (Version 1)
Quarter: 2017Q3

REPORT INFORMATION
  Report Type: Spontaneous
  Country: US (occurrence: None)
  Receive Date: 20170918
  Receipt Date: 20170918
  Transmission Date: 20171128
  Serious: No
  Sender: FDA-Public Use
  Company Number: None

PATIENT
  Sex: Female
  Weight: 93.9 kg

DRUGS (2)
  1. OTREXUP [Suspect]
     Active Substance: METHOTREXATE
     Indication: PSORIATIC ARTHROPATHY
     Route: 058
     Dates: start: 201706
  2. OTREXUP [Suspect]
     Active Substance: METHOTREXATE
     Indication: TREATMENT NONCOMPLIANCE
     Route: 058
     Dates: start: 201706

REACTIONS (2)
  - Treatment noncompliance [None]
  - Urticaria [None]
